FAERS Safety Report 19084627 (Version 1)
Quarter: 2021Q2

REPORT INFORMATION
  Report Type: Spontaneous
  Country: US (occurrence: US)
  Receive Date: 20210401
  Receipt Date: 20210401
  Transmission Date: 20210717
  Serious: No
  Sender: FDA-Public Use
  Company Number: US-IBSA PHARMA-2021-IBS-00134

PATIENT
  Age: 69 Year
  Weight: 77 kg

DRUGS (9)
  1. FLECTOR [Suspect]
     Active Substance: DICLOFENAC EPOLAMINE
     Indication: NEUROPATHY PERIPHERAL
     Route: 062
  2. FLECTOR [Suspect]
     Active Substance: DICLOFENAC EPOLAMINE
     Indication: CONTUSION
     Dosage: 2X/WEEK
     Route: 062
  3. FLECTOR [Suspect]
     Active Substance: DICLOFENAC EPOLAMINE
     Indication: SPINAL DEFORMITY
  4. TYLENOL [Concomitant]
     Active Substance: ACETAMINOPHEN
     Indication: PAIN
     Route: 065
  5. ALEVE [Concomitant]
     Active Substance: NAPROXEN SODIUM
     Indication: PAIN
     Route: 065
  6. FLECTOR [Suspect]
     Active Substance: DICLOFENAC EPOLAMINE
     Indication: LIGAMENT SPRAIN
     Dosage: 3 A DAY FOR 3 DAYS A WEEK
     Route: 062
  7. FLECTOR [Suspect]
     Active Substance: DICLOFENAC EPOLAMINE
     Indication: SCOLIOSIS
  8. FLECTOR [Suspect]
     Active Substance: DICLOFENAC EPOLAMINE
     Indication: PAIN
     Dosage: ONCE A WEEK
     Route: 062
  9. LIDOCAINE. [Concomitant]
     Active Substance: LIDOCAINE
     Indication: PAIN
     Route: 065

REACTIONS (6)
  - Intentional product use issue [Unknown]
  - Nerve compression [Unknown]
  - Drug ineffective [Unknown]
  - Intentional overdose [Unknown]
  - Body height decreased [Unknown]
  - Intentional product misuse [Unknown]
